FAERS Safety Report 14278965 (Version 1)
Quarter: 2017Q4

REPORT INFORMATION
  Report Type: Report from Study
  Country: US (occurrence: US)
  Receive Date: 20171212
  Receipt Date: 20171212
  Transmission Date: 20180321
  Serious: Yes (Hospitalization, Other)
  Sender: FDA-Public Use
  Company Number: PHEH2017US039492

PATIENT
  Age: 47 Year
  Sex: Female

DRUGS (2)
  1. COSENTYX [Suspect]
     Active Substance: SECUKINUMAB
     Indication: PSORIASIS
     Dosage: 300 MG, QMO
     Route: 058
  2. COSENTYX [Suspect]
     Active Substance: SECUKINUMAB
     Dosage: UNK
     Route: 058
     Dates: start: 20171124

REACTIONS (8)
  - Muscle spasms [Unknown]
  - Inappropriate schedule of drug administration [Unknown]
  - Neck pain [Recovering/Resolving]
  - Musculoskeletal stiffness [Unknown]
  - Renal cyst [Unknown]
  - Abdominal pain upper [Unknown]
  - Ulcer [Unknown]
  - Neck pain [Recovered/Resolved]
